FAERS Safety Report 9013271 (Version 1)
Quarter: 2013Q1

REPORT INFORMATION
  Report Type: Spontaneous
  Country: US (occurrence: None)
  Receive Date: 20130107
  Receipt Date: 20130107
  Transmission Date: 20140127
  Serious: Yes (Life-Threatening, Hospitalization, Disabling, Other)
  Sender: FDA-Public Use
  Company Number: None

PATIENT
  Age: 57 Year
  Sex: Female
  Weight: 73.03 kg

DRUGS (1)
  1. ALEVE COLD + SINUS [Suspect]

REACTIONS (5)
  - Gastrointestinal disorder [None]
  - Hypertension [None]
  - Anaemia [None]
  - Cardiac failure [None]
  - Intestinal haemorrhage [None]
